FAERS Safety Report 18692166 (Version 1)
Quarter: 2021Q1

REPORT INFORMATION
  Report Type: Spontaneous
  Country: US (occurrence: US)
  Receive Date: 20210102
  Receipt Date: 20210102
  Transmission Date: 20210419
  Serious: Yes (Hospitalization, Other)
  Sender: FDA-Public Use
  Company Number: US-VIIV HEALTHCARE LIMITED-US2020GSK258628

PATIENT
  Age: 54 Year
  Sex: Male

DRUGS (5)
  1. MARAVIROC [Suspect]
     Active Substance: MARAVIROC
     Indication: HIV INFECTION
  2. DARUNAVIR [Suspect]
     Active Substance: DARUNAVIR
     Indication: HIV INFECTION
  3. HEPATITIS B VACCINE [Suspect]
     Active Substance: HEPATITIS B VIRUS VACCINE
     Indication: PROPHYLAXIS
  4. DOLUTEGRAVIR [Suspect]
     Active Substance: DOLUTEGRAVIR
     Indication: HIV INFECTION
  5. RITONAVIR. [Suspect]
     Active Substance: RITONAVIR
     Indication: HIV INFECTION

REACTIONS (15)
  - Cough [Unknown]
  - Nausea [Unknown]
  - Dyspnoea [Unknown]
  - Productive cough [Unknown]
  - Vaccination failure [Unknown]
  - Chills [Unknown]
  - Pyrexia [Unknown]
  - Wheezing [Unknown]
  - Bronchitis [Unknown]
  - Influenza [Unknown]
  - Central nervous system lesion [Unknown]
  - Cytomegalovirus infection [Unknown]
  - Brain abscess [Unknown]
  - Hepatitis B [Unknown]
  - Aspergillus infection [Unknown]
